FAERS Safety Report 9228632 (Version 2)
Quarter: 2013Q2

REPORT INFORMATION
  Report Type: Spontaneous
  Country: RU (occurrence: RU)
  Receive Date: 20130412
  Receipt Date: 20130523
  Transmission Date: 20140414
  Serious: Yes (Hospitalization, Other)
  Sender: FDA-Public Use
  Company Number: RU-BRISTOL-MYERS SQUIBB COMPANY-18745307

PATIENT
  Age: 44 Year
  Sex: Female

DRUGS (4)
  1. BARACLUDE TABS 0.5 MG [Suspect]
     Indication: CHRONIC HEPATITIS B
     Route: 048
     Dates: start: 20130318, end: 20130328
  2. ROBAXIN [Concomitant]
  3. GLUCOSE [Concomitant]
  4. ASCORBIC ACID [Concomitant]

REACTIONS (2)
  - Hypertensive crisis [Recovered/Resolved]
  - Transaminases increased [Recovering/Resolving]
